FAERS Safety Report 4370129-5 (Version None)
Quarter: 2004Q2

REPORT INFORMATION
  Report Type: 
  Country: None (occurrence: None)
  Receive Date: 20040527
  Receipt Date: 20040521
  Transmission Date: 20050107
  Serious: Yes (Hospitalization)
  Sender: FDA-Public Use
  Company Number: 200411742GDS

PATIENT
  Age: 81 Year
  Sex: Male

DRUGS (6)
  1. ASPIRIN [Suspect]
     Indication: PROPHYLAXIS
     Dosage: 100 MG, TOTAL DAILY; ORAL
     Route: 048
  2. HUMAN INSULIN (INSULIN HUMAN) [Suspect]
     Indication: DIABETES MELLITUS NON-INSULIN-DEPENDENT
     Dosage: NI, BID; SUBCUTANEOUS
     Route: 058
     Dates: end: 20040501
  3. RABEPRAZOLE SODIUM [Concomitant]
  4. LOPERAMIDE HCL [Concomitant]
  5. EUCALYPTI FOLIUM [Concomitant]
  6. ... [Concomitant]

REACTIONS (1)
  - HYPOGLYCAEMIC COMA [None]
